FAERS Safety Report 4840422-8 (Version None)
Quarter: 2005Q4

REPORT INFORMATION
  Report Type: 
  Country: None (occurrence: None)
  Receive Date: 20051101
  Receipt Date: 20050705
  Transmission Date: 20060501
  Serious: No
  Sender: FDA-Public Use
  Company Number: MK200507-0065-1

PATIENT
  Age: 75 Year
  Sex: Male

DRUGS (2)
  1. NEUTROSPEC [Suspect]
     Indication: DIAGNOSTIC PROCEDURE
     Dosage: 20 MCI, ONCE, IV
     Route: 042
     Dates: start: 20050630, end: 20050630
  2. NEUTROSPEC [Suspect]
     Indication: INFLAMMATION
     Dosage: 20 MCI, ONCE, IV
     Route: 042
     Dates: start: 20050630, end: 20050630

REACTIONS (2)
  - HYPERHIDROSIS [None]
  - HYPOTENSION [None]
